FAERS Safety Report 16398155 (Version 1)
Quarter: 2019Q2

REPORT INFORMATION
  Report Type: Spontaneous
  Country: US (occurrence: US)
  Receive Date: 20190606
  Receipt Date: 20190606
  Transmission Date: 20190711
  Serious: Yes (Other)
  Sender: FDA-Public Use
  Company Number: US-PFIZER INC-2019242446

PATIENT

DRUGS (1)
  1. EFFEXOR XR [Suspect]
     Active Substance: VENLAFAXINE HYDROCHLORIDE
     Indication: BIPOLAR I DISORDER
     Dosage: UNK
     Dates: end: 20190201

REACTIONS (27)
  - Condition aggravated [Unknown]
  - Dizziness [Unknown]
  - Sleep terror [Unknown]
  - Hyperhidrosis [Unknown]
  - Vision blurred [Unknown]
  - Irritability [Unknown]
  - Disorientation [Unknown]
  - Bipolar I disorder [Unknown]
  - Drug ineffective [Unknown]
  - Migraine [Unknown]
  - Panic attack [Unknown]
  - Heart rate irregular [Unknown]
  - Insomnia [Unknown]
  - Crying [Unknown]
  - Anger [Unknown]
  - Dysphagia [Unknown]
  - Gait disturbance [Unknown]
  - Confusional state [Unknown]
  - Hypertension [Unknown]
  - Anxiety [Unknown]
  - Social problem [Unknown]
  - Tremor [Unknown]
  - Decreased appetite [Unknown]
  - Mood swings [Unknown]
  - Blindness [Unknown]
  - Palpitations [Unknown]
  - Heart rate increased [Unknown]
